FAERS Safety Report 8986354 (Version 3)
Quarter: 2013Q2

REPORT INFORMATION
  Report Type: Spontaneous
  Country: BR (occurrence: BR)
  Receive Date: 20121226
  Receipt Date: 20130403
  Transmission Date: 20140414
  Serious: Yes (Other)
  Sender: FDA-Public Use
  Company Number: BR-ROCHE-1172516

PATIENT
  Sex: Female
  Weight: 62 kg

DRUGS (6)
  1. XOLAIR [Suspect]
     Indication: ASTHMA
     Route: 065
     Dates: start: 20111128
  2. XOLAIR [Suspect]
     Route: 065
     Dates: start: 20120727
  3. XOLAIR [Suspect]
     Dosage: STOP DATE: //2012
     Route: 058
     Dates: start: 201204
  4. XOLAIR [Suspect]
     Route: 065
     Dates: start: 201209, end: 201210
  5. ALENIA (BRAZIL) [Concomitant]
  6. AEROLIN [Concomitant]

REACTIONS (7)
  - Hiatus hernia [Recovering/Resolving]
  - Malaise [Not Recovered/Not Resolved]
  - Dyspnoea [Unknown]
  - Weight decreased [Recovering/Resolving]
  - Fatigue [Recovering/Resolving]
  - Drug ineffective [Unknown]
  - Asthmatic crisis [Not Recovered/Not Resolved]
